FAERS Safety Report 6090891-3 (Version None)
Quarter: 2009Q1

REPORT INFORMATION
  Report Type: 
  Country: None (occurrence: None)
  Receive Date: 20090224
  Receipt Date: 20090213
  Transmission Date: 20090719
  Serious: No
  Sender: FDA-Public Use
  Company Number: US-ABBOTT-09P-163-0557352-00

PATIENT
  Sex: Male

DRUGS (10)
  1. SIMCOR [Suspect]
     Indication: BLOOD TRIGLYCERIDES INCREASED
     Dosage: 1000 MG/20 MG
     Dates: start: 20081209
  2. ASPIRIN [Concomitant]
     Indication: DRUG USE FOR UNKNOWN INDICATION
     Dosage: ENTERIC COATED
     Route: 048
  3. BENADRYL [Concomitant]
     Indication: FLUSHING
     Route: 048
  4. BENADRYL [Concomitant]
     Indication: PRURITUS
  5. COUMADIN [Concomitant]
     Indication: DRUG USE FOR UNKNOWN INDICATION
     Dosage: STOPPED WHEN HOSPITALIZED FOR BLADDER BLEEDING
     Route: 048
  6. CARVEDILOL [Concomitant]
     Indication: DRUG USE FOR UNKNOWN INDICATION
     Route: 048
  7. LISINOPRIL [Concomitant]
     Indication: DRUG USE FOR UNKNOWN INDICATION
     Route: 048
  8. PLAVIX [Concomitant]
     Indication: DRUG USE FOR UNKNOWN INDICATION
     Route: 048
  9. FLOMAX [Concomitant]
     Indication: DRUG USE FOR UNKNOWN INDICATION
     Route: 048
  10. FINASTERIDE [Concomitant]
     Indication: PROSTATE CANCER
     Route: 048

REACTIONS (4)
  - FLUSHING [None]
  - RASH ERYTHEMATOUS [None]
  - RASH PRURITIC [None]
  - URINARY BLADDER HAEMORRHAGE [None]
